FAERS Safety Report 10186042 (Version 3)
Quarter: 2014Q2

REPORT INFORMATION
  Report Type: Spontaneous
  Country: FR (occurrence: FR)
  Receive Date: 20140521
  Receipt Date: 20140530
  Transmission Date: 20141212
  Serious: No
  Sender: FDA-Public Use
  Company Number: FR-ASTRAZENECA-2014SE10145

PATIENT
  Age: 20981 Day
  Sex: Male
  Weight: 92 kg

DRUGS (1)
  1. XEROQUEL [Suspect]
     Route: 048
     Dates: start: 20130826, end: 20140120

REACTIONS (1)
  - Hepatocellular injury [Recovered/Resolved]
